FAERS Safety Report 20062246 (Version 5)
Quarter: 2022Q4

REPORT INFORMATION
  Report Type: Report from Study
  Country: US (occurrence: US)
  Receive Date: 20211112
  Receipt Date: 20221115
  Transmission Date: 20230113
  Serious: Yes (Other)
  Sender: FDA-Public Use
  Company Number: US-NOVARTISTESTPH-NVSC2021US113292

PATIENT
  Age: 58 Year
  Sex: Female

DRUGS (2)
  1. COSENTYX [Suspect]
     Active Substance: SECUKINUMAB
     Indication: Psoriasis
     Dosage: UNK
     Route: 065
  2. COSENTYX [Suspect]
     Active Substance: SECUKINUMAB
     Dosage: 300 MG, QMO
     Route: 058
     Dates: start: 2019

REACTIONS (12)
  - Pancreatitis [Unknown]
  - Rash macular [Recovered/Resolved]
  - Injection site discharge [Unknown]
  - Psoriasis [Unknown]
  - Gallbladder disorder [Unknown]
  - Weight decreased [Unknown]
  - Alopecia [Unknown]
  - Trichorrhexis [Unknown]
  - Accidental exposure to product [Unknown]
  - Device use issue [Unknown]
  - Injection site haemorrhage [Unknown]
  - Therapeutic product effect incomplete [Unknown]

NARRATIVE: CASE EVENT DATE: 20220911
